FAERS Safety Report 9107144 (Version 1)
Quarter: 2013Q1

REPORT INFORMATION
  Report Type: Spontaneous
  Country: GB (occurrence: GB)
  Receive Date: 20130221
  Receipt Date: 20130221
  Transmission Date: 20140127
  Serious: Yes (Hospitalization, Disabling, Other)
  Sender: FDA-Public Use
  Company Number: GB-TARO-2013P1002306

PATIENT
  Age: 70 Year
  Sex: Male

DRUGS (8)
  1. WARFARIN [Suspect]
     Indication: ATRIAL FIBRILLATION
     Route: 048
  2. AMIODARONE [Concomitant]
  3. DIGOXIN [Concomitant]
  4. LEVOTHYROXINE [Concomitant]
  5. PRAVASTATIN [Concomitant]
  6. RAMIPRIL [Concomitant]
  7. SALBUTAMOL [Concomitant]
  8. SERETIDE [Concomitant]

REACTIONS (7)
  - Gastrointestinal hypomotility [Recovered/Resolved]
  - Nosocomial infection [Recovered/Resolved]
  - International normalised ratio increased [Recovered/Resolved]
  - Back pain [Unknown]
  - Paraplegia [Recovering/Resolving]
  - Spinal subdural haematoma [Recovered/Resolved]
  - Urinary retention [Recovered/Resolved]
